FAERS Safety Report 18681261 (Version 5)
Quarter: 2023Q4

REPORT INFORMATION
  Report Type: Spontaneous
  Country: US (occurrence: US)
  Receive Date: 20201229
  Receipt Date: 20231027
  Transmission Date: 20240110
  Serious: No
  Sender: FDA-Public Use
  Company Number: US-THERATECHNOLOGIES EUROPE LIMITED-2020-THE-IBA-000332

PATIENT

DRUGS (2)
  1. TROGARZO [Suspect]
     Active Substance: IBALIZUMAB-UIYK
     Indication: HIV infection
     Dosage: UNK, EVERY TWO WEEKS
     Route: 042
     Dates: start: 201910
  2. TROGARZO [Suspect]
     Active Substance: IBALIZUMAB-UIYK
     Dosage: UNK, SINGLE
     Route: 042
     Dates: start: 20210420, end: 20210420

REACTIONS (6)
  - Blood creatine increased [Recovered/Resolved]
  - T-lymphocyte count decreased [Unknown]
  - Incorrect dose administered [Unknown]
  - COVID-19 [Recovering/Resolving]
  - Sinus congestion [Recovering/Resolving]
  - Pyrexia [Recovering/Resolving]

NARRATIVE: CASE EVENT DATE: 20210421
